FAERS Safety Report 8179310-0 (Version None)
Quarter: 2012Q1

REPORT INFORMATION
  Report Type: 
  Country: None (occurrence: None)
  Receive Date: 20120229
  Receipt Date: 20120229
  Transmission Date: 20120608
  Serious: No
  Sender: FDA-Public Use
  Company Number: None

PATIENT
  Sex: Male
  Weight: 85.7298 kg

DRUGS (1)
  1. BAUSCH + LOMB PRESERVISION AREDS 2 FORMULA [Suspect]
     Indication: MACULAR DEGENERATION
     Dosage: 2AM / 2PM DAILY MOUTH
     Route: 048
     Dates: start: 20111101, end: 20111201

REACTIONS (4)
  - DIZZINESS [None]
  - HERPES ZOSTER [None]
  - STAPHYLOCOCCAL INFECTION [None]
  - HEADACHE [None]
